FAERS Safety Report 16836200 (Version 1)
Quarter: 2019Q3

REPORT INFORMATION
  Report Type: Spontaneous
  Country: DE (occurrence: DE)
  Receive Date: 20190921
  Receipt Date: 20190921
  Transmission Date: 20191005
  Serious: Yes (Hospitalization, Other)
  Sender: FDA-Public Use
  Company Number: DE-AUROBINDO-AUR-APL-2019-060776

PATIENT
  Sex: Male
  Weight: 78 kg

DRUGS (12)
  1. REVOLADE [Suspect]
     Active Substance: ELTROMBOPAG
     Dosage: 75 MILLIGRAM, ONCE A DAY
     Route: 048
     Dates: start: 20180625
  2. PREDNISOLONE. [Concomitant]
     Active Substance: PREDNISOLONE
     Indication: VIRAL CARDIOMYOPATHY
     Dosage: 100 MG, QD (1-0-0)
     Route: 048
     Dates: start: 20180228
  3. TORSEMIDE. [Concomitant]
     Active Substance: TORSEMIDE
     Indication: VIRAL CARDIOMYOPATHY
     Dosage: 10 MG, QD (1-0-0)
     Route: 048
     Dates: start: 201801
  4. EPLERENONE. [Concomitant]
     Active Substance: EPLERENONE
     Indication: VIRAL CARDIOMYOPATHY
     Dosage: 25 MG, QD (1-0-0)
     Route: 048
     Dates: start: 201801
  5. ENTRESTO [Concomitant]
     Active Substance: SACUBITRIL\VALSARTAN
     Indication: VIRAL CARDIOMYOPATHY
     Dosage: 2 DF, BID (2-0-2)
     Route: 048
     Dates: start: 201801
  6. UNACID (SULTAMICILLIN TOSILATE) [Suspect]
     Active Substance: SULTAMICILLIN TOSYLATE
     Indication: BLOOD CREATININE INCREASED
     Dosage: UNK
     Route: 065
     Dates: start: 20180531, end: 20180615
  7. IDEOS [Concomitant]
     Active Substance: CALCIUM CARBONATE\CHOLECALCIFEROL
     Indication: VIRAL CARDIOMYOPATHY
     Dosage: 2,ONCE A DAY,BID (1-0-1)
     Route: 048
  8. REVOLADE [Suspect]
     Active Substance: ELTROMBOPAG
     Indication: IMMUNE THROMBOCYTOPENIC PURPURA
     Dosage: 50 MILLIGRAM, ONCE A DAY
     Route: 048
     Dates: start: 20180328
  9. REVOLADE [Suspect]
     Active Substance: ELTROMBOPAG
     Dosage: 75 MILLIGRAM, ONCE A DAY
     Route: 048
     Dates: start: 20180424
  10. BISOPROLOL [Concomitant]
     Active Substance: BISOPROLOL
     Indication: VIRAL CARDIOMYOPATHY
     Dosage: 5 MG, BID (1-0-1)
     Route: 048
     Dates: start: 201801
  11. PANTOPRAZOLE [Suspect]
     Active Substance: PANTOPRAZOLE
     Indication: GASTROOESOPHAGEAL REFLUX DISEASE
     Dosage: 40 MILLIGRAM, ONCE A DAY
     Route: 048
     Dates: start: 20180625
  12. ASPIRIN. [Concomitant]
     Active Substance: ASPIRIN
     Indication: VIRAL CARDIOMYOPATHY
     Dosage: 100 MG, QD (0-1-0)
     Route: 048
     Dates: start: 201801

REACTIONS (7)
  - Nausea [Recovering/Resolving]
  - Acne [Unknown]
  - Proteinuria [Unknown]
  - Blood creatinine increased [Recovering/Resolving]
  - Thrombocytopenia [Recovered/Resolved]
  - Infection [Unknown]
  - Fatigue [Unknown]

NARRATIVE: CASE EVENT DATE: 20180424
